FAERS Safety Report 8886449 (Version 2)
Quarter: 2012Q4

REPORT INFORMATION
  Report Type: 
  Country: LV (occurrence: LV)
  Receive Date: 20121105
  Receipt Date: 20121116
  Transmission Date: 20130627
  Serious: Yes (Other)
  Sender: FDA-Public Use
  Company Number: LV-GLAXOSMITHKLINE-B0841343A

PATIENT
  Sex: Male
  Weight: 72 kg

DRUGS (3)
  1. TROBALT [Suspect]
     Indication: PARTIAL SEIZURES
     Dosage: 50MG Three times per day
     Route: 048
     Dates: start: 20120402, end: 20120713
  2. LAMICTAL [Concomitant]
     Indication: PARTIAL SEIZURES
     Dosage: 250MG per day
     Route: 048
  3. DEPAKINE CHRONO [Concomitant]
     Indication: PARTIAL SEIZURES
     Dosage: 500MG per day
     Route: 048

REACTIONS (3)
  - Epilepsy [Recovered/Resolved]
  - Somnolence [Recovered/Resolved]
  - Dizziness [Recovered/Resolved]
